FAERS Safety Report 4277461-4 (Version None)
Quarter: 2004Q1

REPORT INFORMATION
  Report Type: 
  Country: None (occurrence: None)
  Receive Date: 20040122
  Receipt Date: 20040113
  Transmission Date: 20041129
  Serious: Yes (Hospitalization)
  Sender: FDA-Public Use
  Company Number: FR-ROCHE-355726

PATIENT
  Age: 48 Year
  Sex: Male

DRUGS (4)
  1. LOXEN [Suspect]
     Indication: HYPERTENSION
     Route: 048
     Dates: start: 20030909
  2. EUPRESSYL [Suspect]
     Indication: HYPERTENSION
     Route: 048
     Dates: start: 20030901
  3. ZYPREXA [Suspect]
     Indication: AGITATION
     Route: 048
     Dates: start: 20030912
  4. DEPAKENE [Suspect]
     Indication: DRUG USE FOR UNKNOWN INDICATION
     Route: 048
     Dates: start: 20030912

REACTIONS (2)
  - ATRIOVENTRICULAR BLOCK COMPLETE [None]
  - BRADYCARDIA [None]
